FAERS Safety Report 7479837-0 (Version None)
Quarter: 2011Q2

REPORT INFORMATION
  Report Type: 
  Country: None (occurrence: None)
  Receive Date: 20110514
  Receipt Date: 20110429
  Transmission Date: 20111010
  Serious: Yes (Death, Hospitalization, Other)
  Sender: FDA-Public Use
  Company Number: US-AMGEN-QUU396201

PATIENT
  Age: 37 Year
  Sex: Female
  Weight: 85.714 kg

DRUGS (29)
  1. METHOTREXATE [Concomitant]
     Dosage: 15 MG, QWK
     Route: 058
     Dates: start: 20050601, end: 20080301
  2. LIPITOR [Concomitant]
  3. MOBIC [Concomitant]
     Dosage: 15 MG, UNK
  4. MAXZIDE [Concomitant]
     Dosage: UNK UNK, BID
  5. DARVOCET [Concomitant]
     Dosage: UNK UNK, Q4H
  6. PROTONIX [Concomitant]
     Dosage: 40 MG, QD
     Route: 048
  7. ENBREL [Suspect]
     Dosage: 50 MG, QWK
     Route: 058
     Dates: start: 20010801, end: 20010101
  8. PROCRIT [Suspect]
     Indication: ANAEMIA OF CHRONIC DISEASE
     Dosage: UNK
     Dates: start: 20090101
  9. DICLOFENAC SODIUM (SOLARAZE) [Concomitant]
     Dosage: 75 MG, UNK
  10. VYTORIN [Concomitant]
     Dosage: 80 MG, UNK
     Route: 048
  11. RISPERDAL [Concomitant]
     Dosage: 0.5 MG, UNK
  12. XANAX [Concomitant]
     Dosage: .025 UNK, UNK
  13. PAXIL [Concomitant]
  14. LORAZEPAM [Concomitant]
     Dosage: 0.5 MG, BID
     Route: 048
  15. DARVOCET [Concomitant]
     Dosage: UNK, Q6H
  16. ENBREL [Suspect]
     Indication: RHEUMATOID ARTHRITIS
     Dosage: 25 MG, 2 TIMES/WK
     Dates: start: 20010802, end: 20080301
  17. ENBREL [Suspect]
     Dosage: 50 MG, QWK
     Dates: start: 20050928, end: 20060407
  18. NIRAVAM [Concomitant]
     Dosage: 0.5 MG, UNK
  19. TEMAZ [Concomitant]
     Dosage: 30 MG, QHS
  20. ACCUPRIL [Concomitant]
     Dosage: 40 MG, UNK
     Route: 048
  21. LEXAPRO [Concomitant]
     Dosage: 30 MG, QD
     Route: 048
  22. PRILOSEC [Concomitant]
  23. ACCUPRIL [Concomitant]
     Dosage: 20 MG, BID
     Route: 048
  24. NORTRIPTYLINE HCL [Concomitant]
     Dosage: 25 MG, UNK
     Route: 048
  25. METHOTREXATE [Concomitant]
     Dosage: 15 MG, QWK
     Route: 048
     Dates: start: 20050501, end: 20080301
  26. ADVIL LIQUI-GELS [Concomitant]
  27. ALPRAZOLAM [Concomitant]
     Dosage: 0.5 MG, UNK
     Route: 048
  28. METOPROLOL TARTRATE [Concomitant]
     Dosage: 12.5 MG, BID
     Route: 048
  29. RELAFIN [Concomitant]
     Dosage: 500 UNK, UNK
     Dates: end: 20050505

REACTIONS (71)
  - ATELECTASIS [None]
  - HEART RATE INCREASED [None]
  - BACTEROIDES INFECTION [None]
  - FIBROMYALGIA [None]
  - NASAL POLYPS [None]
  - PARANASAL CYST [None]
  - PULMONARY EMBOLISM [None]
  - IMPAIRED GASTRIC EMPTYING [None]
  - METABOLIC ALKALOSIS [None]
  - DIABETES MELLITUS [None]
  - ACTIVITIES OF DAILY LIVING IMPAIRED [None]
  - STAPHYLOCOCCAL OSTEOMYELITIS [None]
  - PAIN [None]
  - JOINT EFFUSION [None]
  - RASH [None]
  - LYMPHADENOPATHY [None]
  - RHEUMATOID ARTHRITIS [None]
  - ASTHENIA [None]
  - UTERINE CANCER [None]
  - LOBAR PNEUMONIA [None]
  - BONE CYST [None]
  - GASTROINTESTINAL DISORDER [None]
  - ESCHERICHIA INFECTION [None]
  - VITAMIN B12 DEFICIENCY [None]
  - FATIGUE [None]
  - HYPOPHAGIA [None]
  - FUNGAL OESOPHAGITIS [None]
  - ENTEROBACTER BACTERAEMIA [None]
  - DYSPHONIA [None]
  - EMOTIONAL DISTRESS [None]
  - CHOLELITHIASIS [None]
  - HERPES ZOSTER [None]
  - IMMUNOSUPPRESSION [None]
  - METABOLIC ACIDOSIS [None]
  - PERICARDIAL EFFUSION [None]
  - HYPOKALAEMIA [None]
  - FEAR OF DEATH [None]
  - ANXIETY [None]
  - URINARY TRACT INFECTION PSEUDOMONAL [None]
  - PNEUMONIA KLEBSIELLA [None]
  - DECUBITUS ULCER [None]
  - MYOSITIS [None]
  - ENTEROBACTER INFECTION [None]
  - RESPIRATORY FAILURE [None]
  - FAILURE TO THRIVE [None]
  - BLOOD GLUCOSE INCREASED [None]
  - WEIGHT DECREASED [None]
  - CERVIX CARCINOMA [None]
  - VOCAL CORD PARALYSIS [None]
  - QUALITY OF LIFE DECREASED [None]
  - ENTEROCOCCAL INFECTION [None]
  - CATHETER SITE INFECTION [None]
  - CARDIAC MURMUR [None]
  - LEUKOCYTOSIS [None]
  - BRONCHITIS [None]
  - ZYGOMYCOSIS [None]
  - RENAL FAILURE ACUTE [None]
  - HYPOMAGNESAEMIA [None]
  - DEFORMITY [None]
  - ALPHA HAEMOLYTIC STREPTOCOCCAL INFECTION [None]
  - SEPSIS [None]
  - OSTEOARTHRITIS [None]
  - NASAL SEPTUM DEVIATION [None]
  - STAPHYLOCOCCAL INFECTION [None]
  - DRUG INEFFECTIVE [None]
  - FEEDING TUBE COMPLICATION [None]
  - LUNG NEOPLASM [None]
  - GENERAL PHYSICAL HEALTH DETERIORATION [None]
  - ENDOCARDITIS [None]
  - DYSURIA [None]
  - DIARRHOEA [None]
